FAERS Safety Report 5010872-8 (Version None)
Quarter: 2006Q2

REPORT INFORMATION
  Report Type: 
  Country: None (occurrence: None)
  Receive Date: 20060525
  Receipt Date: 20060517
  Transmission Date: 20061013
  Serious: Yes (Hospitalization)
  Sender: FDA-Public Use
  Company Number: FR-GLAXOSMITHKLINE-B0424683A

PATIENT
  Age: 41 Year
  Sex: Male

DRUGS (5)
  1. DEROXAT [Suspect]
     Dosage: 20MG PER DAY
     Route: 048
     Dates: start: 20040615
  2. HALDOL [Suspect]
     Dosage: 2.5MG TWICE PER DAY
     Route: 048
     Dates: start: 20051101
  3. LOXAPAC [Suspect]
     Dosage: 150MG PER DAY
     Route: 048
     Dates: start: 20051001, end: 20060320
  4. NOCTRAN [Suspect]
     Route: 048
     Dates: start: 20040615
  5. TERCIAN [Suspect]
     Route: 048
     Dates: start: 20040101

REACTIONS (2)
  - DYSURIA [None]
  - URINARY RETENTION [None]
